FAERS Safety Report 14140754 (Version 1)
Quarter: 2017Q4

REPORT INFORMATION
  Report Type: Spontaneous
  Country: CA (occurrence: None)
  Receive Date: 20171027
  Receipt Date: 20171027
  Transmission Date: 20180321
  Serious: Yes (Other)
  Sender: FDA-Public Use
  Company Number: 2017-195326

PATIENT
  Age: 2 Month

DRUGS (1)
  1. HYDRASENSE ULTRA GENTLE NASAL MIST (SODIUM CHLORIDE) NASAL SPRAY, SOLUTION [Suspect]
     Active Substance: SEA WATER

REACTIONS (3)
  - Near drowning [None]
  - Product use complaint [None]
  - Choking [None]
